FAERS Safety Report 13927801 (Version 1)
Quarter: 2017Q3

REPORT INFORMATION
  Report Type: Report from Study
  Country: None (occurrence: CA)
  Receive Date: 20170831
  Receipt Date: 20170831
  Transmission Date: 20171127
  Serious: Yes (Death, Hospitalization, Other)
  Sender: FDA-Public Use
  Company Number: CA-ABBVIE-17P-028-2085261-00

PATIENT
  Age: 90 Year
  Sex: Male

DRUGS (1)
  1. LUPRON DEPOT [Suspect]
     Active Substance: LEUPROLIDE ACETATE
     Indication: PROSTATE CANCER
     Route: 030
     Dates: start: 20091102, end: 20151130

REACTIONS (8)
  - Chills [Unknown]
  - Sepsis [Unknown]
  - Vomiting [Unknown]
  - Urinary tract infection [Unknown]
  - Urinary retention [Fatal]
  - Altered state of consciousness [Unknown]
  - Agitation [Unknown]
  - Adult failure to thrive [Unknown]

NARRATIVE: CASE EVENT DATE: 20170725
